FAERS Safety Report 15447488 (Version 1)
Quarter: 2018Q3

REPORT INFORMATION
  Report Type: Spontaneous
  Country: US (occurrence: US)
  Receive Date: 20180928
  Receipt Date: 20180928
  Transmission Date: 20181010
  Serious: No
  Sender: FDA-Public Use
  Company Number: US-AMGEN-USASP2018102059

PATIENT
  Age: 88 Year
  Sex: Female

DRUGS (2)
  1. PREDNISONE. [Concomitant]
     Active Substance: PREDNISONE
     Indication: BONE DISORDER
  2. PROLIA [Suspect]
     Active Substance: DENOSUMAB
     Indication: MULTIPLE FRACTURES
     Dosage: 60 MG, Q6MO
     Route: 065
     Dates: start: 20180712

REACTIONS (9)
  - Neck pain [Unknown]
  - Spinal column stenosis [Unknown]
  - Back pain [Unknown]
  - Fibromyalgia [Unknown]
  - Arthralgia [Unknown]
  - Myalgia [Unknown]
  - Constipation [Unknown]
  - Muscle tightness [Unknown]
  - Headache [Unknown]

NARRATIVE: CASE EVENT DATE: 201807
